FAERS Safety Report 4744780-4 (Version None)
Quarter: 2005Q3

REPORT INFORMATION
  Report Type: 
  Country: None (occurrence: None)
  Receive Date: 20050809
  Receipt Date: 20050726
  Transmission Date: 20060218
  Serious: Yes (Life-Threatening, Hospitalization)
  Sender: FDA-Public Use
  Company Number: SAGL-ZLB/05/68/DEN

PATIENT
  Age: 80 Year
  Sex: Female
  Weight: 86 kg

DRUGS (12)
  1. SANDOGLOBULIN [Suspect]
     Indication: PEMPHIGUS
     Dosage: 45 G, MONTHLY OVER 4 DAYS, I.V.
     Route: 042
     Dates: start: 20041214, end: 20050602
  2. FOLIMET                   (FOLIC ACID) [Concomitant]
  3. PREDNISOLONE [Concomitant]
  4. RAMIPRIL [Concomitant]
  5. METOPROLOL            (METOPORLOL) [Concomitant]
  6. CENTYL MED KCH              (SALURES-K) [Concomitant]
  7. MAGENSIUM               (MAGNESIUM) [Concomitant]
  8. TRADOLAN            (TRAMADOL HYDROCHLORIDE) [Concomitant]
  9. PAMOL          (PARACETAMOL) [Concomitant]
  10. POTASSIUM CHLORIDE [Concomitant]
  11. UNIKALK M. D-VIT               (CALCIUM WITH VITAMIN D) [Concomitant]
  12. VAGIFEM [Concomitant]

REACTIONS (4)
  - DYSPNOEA [None]
  - LUNG INFILTRATION [None]
  - PERIPHERAL EMBOLISM [None]
  - PULMONARY EMBOLISM [None]
